FAERS Safety Report 18507092 (Version 1)
Quarter: 2020Q4

REPORT INFORMATION
  Report Type: Spontaneous
  Country: US (occurrence: US)
  Receive Date: 20201115
  Receipt Date: 20201115
  Transmission Date: 20210114
  Serious: Yes (Life-Threatening, Hospitalization, Disabling)
  Sender: FDA-Public Use
  Company Number: None

PATIENT
  Age: 34 Year
  Sex: Male
  Weight: 90 kg

DRUGS (9)
  1. LIPITOR [Suspect]
     Active Substance: ATORVASTATIN CALCIUM
     Indication: HYPERCHOLESTEROLAEMIA
  2. VITAMIN C [Concomitant]
     Active Substance: ASCORBIC ACID
  3. FOLATE [Concomitant]
     Active Substance: FOLATE SODIUM
  4. CPAP [Concomitant]
     Active Substance: DEVICE
  5. ACETYL L CARNITINE [Concomitant]
  6. VITAMIN E [Concomitant]
     Active Substance: .ALPHA.-TOCOPHEROL
  7. NIACIN. [Concomitant]
     Active Substance: NIACIN
  8. VITAMIN B COMPLEX [Concomitant]
     Active Substance: CYANOCOBALAMIN\DEXPANTHENOL\NIACINAMIDE\PYRIDOXINE HYDROCHLORIDE\RIBOFLAVIN 5^-PHOSPHATE SODIUM\THIAMINE HYDROCHLORIDE\VITAMIN B COMPLEX
  9. UBIQUINOL [Concomitant]
     Active Substance: UBIQUINOL

REACTIONS (6)
  - Dementia Alzheimer^s type [None]
  - Polyneuropathy [None]
  - MELAS syndrome [None]
  - Apoptosis [None]
  - Encephalitis viral [None]
  - Mitochondrial DNA mutation [None]

NARRATIVE: CASE EVENT DATE: 20021010
